FAERS Safety Report 17804168 (Version 15)
Quarter: 2024Q2

REPORT INFORMATION
  Report Type: Spontaneous
  Country: BR (occurrence: BR)
  Receive Date: 20200519
  Receipt Date: 20240625
  Transmission Date: 20240716
  Serious: Yes (Hospitalization, Other)
  Sender: FDA-Public Use
  Company Number: BR-GLAXOSMITHKLINE-BR2020AMR081215

PATIENT

DRUGS (8)
  1. BENLYSTA [Suspect]
     Active Substance: BELIMUMAB
     Indication: Systemic lupus erythematosus
     Dosage: 10 MG/KG, BIWEEKLY
     Route: 042
     Dates: start: 20200101
  2. BENLYSTA [Suspect]
     Active Substance: BELIMUMAB
     Dosage: UNK UNK, Q4W, 3X120 MG/1X400 MG
     Route: 042
  3. PREDNISONE [Suspect]
     Active Substance: PREDNISONE
     Indication: Systemic lupus erythematosus
     Dosage: 1 DF, QD
  4. MYCOPHENOLATE MOFETIL [Suspect]
     Active Substance: MYCOPHENOLATE MOFETIL
     Indication: Product used for unknown indication
     Dosage: UNK
  5. CHLOROQUINE [Concomitant]
     Active Substance: CHLOROQUINE
     Indication: Product used for unknown indication
     Dosage: UNK
  6. CYCLOSPORINE [Concomitant]
     Active Substance: CYCLOSPORINE
     Indication: Product used for unknown indication
     Dosage: UNK
  7. AZATHIOPRINE [Concomitant]
     Active Substance: AZATHIOPRINE
     Indication: Systemic lupus erythematosus
     Dosage: UNK
  8. HYDROXYCHLOROQUINE [Concomitant]
     Active Substance: HYDROXYCHLOROQUINE
     Indication: Systemic lupus erythematosus
     Dosage: UNK

REACTIONS (24)
  - Cholecystitis [Unknown]
  - Systemic lupus erythematosus [Unknown]
  - Nephritis [Not Recovered/Not Resolved]
  - Renal impairment [Unknown]
  - Appendicectomy [Recovered/Resolved]
  - Mobility decreased [Not Recovered/Not Resolved]
  - Emotional distress [Unknown]
  - Proteinuria [Unknown]
  - Haematuria [Unknown]
  - Skin lesion [Unknown]
  - Urinary sediment present [Unknown]
  - Condition aggravated [Unknown]
  - Vasculitis [Unknown]
  - Myalgia [Not Recovered/Not Resolved]
  - Pain in extremity [Not Recovered/Not Resolved]
  - Arthralgia [Not Recovered/Not Resolved]
  - Urine abnormality [Not Recovered/Not Resolved]
  - Rash [Not Recovered/Not Resolved]
  - Oliguria [Not Recovered/Not Resolved]
  - Inappropriate schedule of product administration [Unknown]
  - Product dose omission issue [Unknown]
  - Social problem [Unknown]
  - Product availability issue [Unknown]
  - Product dispensing error [Unknown]

NARRATIVE: CASE EVENT DATE: 20210129
